FAERS Safety Report 5795292-0 (Version None)
Quarter: 2008Q2

REPORT INFORMATION
  Report Type: 
  Country: None (occurrence: None)
  Receive Date: 20080630
  Receipt Date: 20080617
  Transmission Date: 20081010
  Serious: Yes (Hospitalization)
  Sender: FDA-Public Use
  Company Number: FR-ELI_LILLY_AND_COMPANY-FR200801000026

PATIENT
  Sex: Male
  Weight: 94 kg

DRUGS (9)
  1. HUMATROPE [Suspect]
     Indication: GROWTH HORMONE DEFICIENCY
     Dosage: 0.3 MG, DAILY (1/D)
     Route: 058
     Dates: start: 20050921
  2. HYDROCORTISONE [Concomitant]
     Indication: HYPOPITUITARISM
     Dosage: 10 MG, 2/D
     Route: 048
     Dates: start: 19960301
  3. DHEA [Concomitant]
     Indication: HYPOPITUITARISM
     Dosage: 50 MG, DAILY (1/D)
     Route: 048
     Dates: start: 19960301
  4. ANDROTARDYL [Concomitant]
     Indication: HYPOPITUITARISM
     Dosage: 250 UNK, MONTHLY (1/M)
     Route: 030
     Dates: start: 19960301
  5. CRESTOR [Concomitant]
     Indication: DYSLIPIDAEMIA
     Dosage: 10 MG, EACH EVENING
     Route: 048
     Dates: start: 20050201
  6. VERAPAMIL [Concomitant]
     Indication: HYPERTENSION
     Dosage: 240 MG, 2/D
     Route: 048
     Dates: start: 20060101
  7. QUINAPRIL HCL AND HYDROCHLOROTHIAZIDE [Concomitant]
     Indication: HYPERTENSION
     Dosage: 1 D/F, EACH MORNING
     Route: 048
     Dates: start: 20060101
  8. LEVOTHYROXINE SODIUM [Concomitant]
     Indication: HYPOPITUITARISM
     Dosage: 75 UG, EACH MORNING
     Route: 048
     Dates: start: 20070601
  9. PREVISCAN [Concomitant]
     Indication: PULMONARY EMBOLISM
     Route: 048
     Dates: start: 20070301

REACTIONS (3)
  - ANAEMIA [None]
  - INGUINAL HERNIA [None]
  - PULMONARY EMBOLISM [None]
